FAERS Safety Report 7732873-9 (Version None)
Quarter: 2011Q3

REPORT INFORMATION
  Report Type: 
  Country: None (occurrence: None)
  Receive Date: 20110907
  Receipt Date: 20110825
  Transmission Date: 20111222
  Serious: Yes (Other)
  Sender: FDA-Public Use
  Company Number: US-UCBSA-034659

PATIENT
  Sex: Male
  Weight: 20.9 kg

DRUGS (4)
  1. DIASTAT [Concomitant]
     Indication: CONVULSION
     Route: 054
     Dates: start: 20100121
  2. FELBATOL [Concomitant]
     Indication: CONVULSION
     Dosage: 1 TABLET
     Route: 048
     Dates: start: 20100121
  3. KEPPRA [Suspect]
     Indication: GRAND MAL CONVULSION
     Dosage: DOSE:250 MG UNIT: 1.5 TABLET TWICE DAILY
     Route: 048
     Dates: start: 20100121
  4. KEPPRA [Suspect]
     Indication: CONVULSION
     Dosage: DOSE:250 MG UNIT: 1.5 TABLET TWICE DAILY
     Route: 048
     Dates: start: 20100121

REACTIONS (4)
  - URINARY INCONTINENCE [None]
  - DYSARTHRIA [None]
  - DRUG INEFFECTIVE [None]
  - CONVULSION [None]
